FAERS Safety Report 5748622-X (Version None)
Quarter: 2008Q2

REPORT INFORMATION
  Report Type: 
  Country: None (occurrence: None)
  Receive Date: 20080523
  Receipt Date: 20080514
  Transmission Date: 20081010
  Serious: Yes (Other)
  Sender: FDA-Public Use
  Company Number: DK-PFIZER INC-2008043208

PATIENT
  Age: 60 Year
  Sex: Female

DRUGS (7)
  1. PREGABALIN [Suspect]
     Route: 048
  2. GABAPENTIN [Suspect]
     Route: 048
  3. FUROSEMIDE [Suspect]
     Route: 048
  4. TIOTROPIUM [Concomitant]
  5. SALMETEROL [Concomitant]
  6. ALENDRONATE SODIUM [Concomitant]
  7. PANTOPRAZOLE SODIUM [Concomitant]

REACTIONS (5)
  - DELUSION [None]
  - DIZZINESS [None]
  - HYPOACUSIS [None]
  - SPEECH DISORDER [None]
  - URETHRITIS [None]
